FAERS Safety Report 17149153 (Version 1)
Quarter: 2019Q4

REPORT INFORMATION
  Report Type: Report from Study
  Country: US (occurrence: US)
  Receive Date: 20191213
  Receipt Date: 20191213
  Transmission Date: 20200122
  Serious: Yes (Other)
  Sender: FDA-Public Use
  Company Number: US-BIOGEN-2019BI00803110

PATIENT
  Sex: Female

DRUGS (2)
  1. PLEGRIDY [Suspect]
     Active Substance: PEGINTERFERON BETA-1A
     Indication: MULTIPLE SCLEROSIS
     Route: 058
     Dates: start: 2011
  2. PLEGRIDY [Suspect]
     Active Substance: PEGINTERFERON BETA-1A
     Route: 065

REACTIONS (9)
  - Osteoarthritis [Unknown]
  - Intervertebral disc protrusion [Unknown]
  - Musculoskeletal disorder [Unknown]
  - Muscle fatigue [Unknown]
  - Gait inability [Unknown]
  - Spinal cord compression [Unknown]
  - Medical device pain [Unknown]
  - Depression [Unknown]
  - Spinal stenosis [Unknown]
